FAERS Safety Report 24734920 (Version 5)
Quarter: 2025Q2

REPORT INFORMATION
  Report Type: Spontaneous
  Country: DE (occurrence: DE)
  Receive Date: 20241215
  Receipt Date: 20250402
  Transmission Date: 20250717
  Serious: Yes (Hospitalization, Other)
  Sender: MDD OPERATIONS
  Company Number: DE-ZAMBON-202402963DEU

PATIENT
  Age: 62 Year
  Sex: Male

DRUGS (10)
  1. XADAGO [Suspect]
     Active Substance: SAFINAMIDE MESYLATE
     Indication: Parkinson^s disease
     Route: 048
     Dates: start: 20240929, end: 20250311
  2. LEVODOPA [Concomitant]
     Active Substance: LEVODOPA
     Indication: Parkinson^s disease
  3. LEVODOPA [Concomitant]
     Active Substance: LEVODOPA
     Dosage: 150/150/100/100 MG + 100 MG RETARD AT NIGHT
     Dates: start: 20240928
  4. LEVODOPA [Concomitant]
     Active Substance: LEVODOPA
     Dates: start: 20240929
  5. PRAMIPEXOLE [Concomitant]
     Active Substance: PRAMIPEXOLE
     Indication: Product used for unknown indication
  6. APIXABAN [Concomitant]
     Active Substance: APIXABAN
     Indication: Product used for unknown indication
  7. LEVOTHYROXINE SODIUM [Concomitant]
     Active Substance: LEVOTHYROXINE SODIUM
     Indication: Product used for unknown indication
  8. BENSERAZIDE [Concomitant]
     Active Substance: BENSERAZIDE
     Indication: Parkinson^s disease
     Dosage: FIVE DOSAGE FORMS
  9. BENSERAZIDE [Concomitant]
     Active Substance: BENSERAZIDE
  10. SILDENAFIL [Concomitant]
     Active Substance: SILDENAFIL
     Indication: Erectile dysfunction

REACTIONS (19)
  - Atrial fibrillation [Recovered/Resolved]
  - Cataract [Unknown]
  - Heart rate increased [Not Recovered/Not Resolved]
  - Myopia [Not Recovered/Not Resolved]
  - Visual impairment [Not Recovered/Not Resolved]
  - Dyspnoea [Not Recovered/Not Resolved]
  - Palpitations [Not Recovered/Not Resolved]
  - Vertigo [Recovered/Resolved]
  - Balance disorder [Recovered/Resolved]
  - Fatigue [Recovered/Resolved]
  - Ocular hyperaemia [Unknown]
  - Dry eye [Unknown]
  - Visual acuity reduced [Unknown]
  - Glare [Unknown]
  - Blood pressure increased [Not Recovered/Not Resolved]
  - Libido increased [Unknown]
  - Headache [Recovered/Resolved]
  - Orthostatic hypotension [Not Recovered/Not Resolved]
  - Contraindicated product administered [Unknown]

NARRATIVE: CASE EVENT DATE: 20240101
